FAERS Safety Report 18599907 (Version 3)
Quarter: 2021Q2

REPORT INFORMATION
  Report Type: Spontaneous
  Country: US (occurrence: US)
  Receive Date: 20201210
  Receipt Date: 20210504
  Transmission Date: 20210717
  Serious: Yes (Other)
  Sender: FDA-Public Use
  Company Number: US-SA-2020SA349208

PATIENT
  Age: 45 Year
  Sex: Male

DRUGS (1)
  1. CAPRELSA [Suspect]
     Active Substance: VANDETANIB
     Indication: THYROID CANCER
     Dosage: 200 MG, QD
     Route: 048
     Dates: start: 20200131, end: 20210421

REACTIONS (4)
  - Diarrhoea [Not Recovered/Not Resolved]
  - Skin disorder [Recovered/Resolved]
  - Thyroid cancer [Unknown]
  - Malignant neoplasm progression [Unknown]
